FAERS Safety Report 9226630 (Version 3)
Quarter: 2013Q2

REPORT INFORMATION
  Report Type: Report from Study
  Country: CA (occurrence: CA)
  Receive Date: 20130412
  Receipt Date: 20130621
  Transmission Date: 20140414
  Serious: Yes (Hospitalization)
  Sender: FDA-Public Use
  Company Number: CA-PFIZER INC-2013104427

PATIENT
  Age: 55 Year
  Sex: Female

DRUGS (8)
  1. SUNITINIB MALATE [Suspect]
     Indication: METASTATIC RENAL CELL CARCINOMA
     Dosage: 50 MG, 1 DAY
     Route: 048
     Dates: start: 20130219, end: 20130303
  2. BMS-936558 [Suspect]
     Indication: METASTATIC RENAL CELL CARCINOMA
     Dosage: 267.5 MG, 1 DAY
     Route: 042
     Dates: start: 20130219, end: 20130219
  3. TYLENOL [Concomitant]
     Indication: ADVERSE REACTION
     Dosage: UNK
     Dates: start: 20130302
  4. NORMAL SALINE [Concomitant]
     Dosage: UNK
     Dates: start: 20130303, end: 20130304
  5. PREDNISONE [Concomitant]
  6. IMIPENEM [Concomitant]
  7. FILGRASTIM [Concomitant]
  8. DEXTROSE 5% 1/2 NORMAL SALINE [Concomitant]

REACTIONS (1)
  - Hepatitis acute [Recovered/Resolved]
